FAERS Safety Report 8473956-8 (Version None)
Quarter: 2012Q2

REPORT INFORMATION
  Report Type: 
  Country: None (occurrence: None)
  Receive Date: 20120628
  Receipt Date: 20120220
  Transmission Date: 20120825
  Serious: Yes (Other)
  Sender: FDA-Public Use
  Company Number: US-MYLANLABS-2012S1004074

PATIENT
  Age: 23 Year
  Sex: Female

DRUGS (5)
  1. BENZTROPINE MESYLATE [Concomitant]
     Route: 048
  2. CLOZAPINE [Suspect]
     Dates: start: 20110914, end: 20120124
  3. CLONAZEPAM [Concomitant]
     Route: 048
  4. LEVOTHYROXINE [Concomitant]
     Indication: HYPOTHYROIDISM
     Route: 048
  5. DIVALPROEX SODIUM [Concomitant]
     Route: 048

REACTIONS (1)
  - GRANULOCYTOPENIA [None]
